FAERS Safety Report 9530842 (Version 2)
Quarter: 2016Q3

REPORT INFORMATION
  Report Type: Spontaneous
  Country: CA (occurrence: CA)
  Receive Date: 20130918
  Receipt Date: 20160722
  Transmission Date: 20161109
  Serious: Yes (Other)
  Sender: FDA-Public Use
  Company Number: CA-009507513-1309CAN006032

PATIENT
  Age: 16 Year
  Sex: Female
  Weight: 64 kg

DRUGS (2)
  1. SINGULAIR [Suspect]
     Active Substance: MONTELUKAST SODIUM
     Indication: ASTHMA EXERCISE INDUCED
     Dosage: 10 MG (1 TABLET), QD
     Route: 048
     Dates: start: 20120310, end: 20120418
  2. ADVIL [Concomitant]
     Active Substance: IBUPROFEN
     Dosage: UNK
     Route: 065

REACTIONS (7)
  - Abnormal behaviour [Recovered/Resolved]
  - Suicidal ideation [Recovered/Resolved]
  - Obsessive-compulsive disorder [Recovered/Resolved]
  - Mood altered [Recovered/Resolved]
  - Depression [Recovered/Resolved]
  - Intentional self-injury [Recovered/Resolved]
  - Self-injurious ideation [Recovered/Resolved]

NARRATIVE: CASE EVENT DATE: 20120418
